FAERS Safety Report 12208555 (Version 2)
Quarter: 2016Q2

REPORT INFORMATION
  Report Type: Spontaneous
  Country: US (occurrence: US)
  Receive Date: 20160324
  Receipt Date: 20160531
  Transmission Date: 20160815
  Serious: Yes (Hospitalization, Other)
  Sender: FDA-Public Use
  Company Number: US-BAYER-2016-056200

PATIENT
  Age: 35 Year
  Sex: Female
  Weight: 58.96 kg

DRUGS (2)
  1. MIRENA [Suspect]
     Active Substance: LEVONORGESTREL
     Indication: CONTRACEPTION
     Dosage: 20 MCG/24HR, CONT
     Route: 015
     Dates: start: 20091008, end: 20140402
  2. TYLENOL COLD MULTI-SYMPTOM SEVERE [Concomitant]
     Active Substance: ACETAMINOPHEN\DEXTROMETHORPHAN HYDROBROMIDE\GUAIFENESIN\PHENYLEPHRINE HYDROCHLORIDE

REACTIONS (8)
  - Abortion spontaneous [None]
  - Breast tenderness [None]
  - Device dislocation [None]
  - Drug ineffective [None]
  - Device dislocation [None]
  - Blighted ovum [None]
  - Fatigue [None]
  - Pregnancy with contraceptive device [None]

NARRATIVE: CASE EVENT DATE: 201403
